FAERS Safety Report 5034703-5 (Version None)
Quarter: 2006Q2

REPORT INFORMATION
  Report Type: 
  Country: None (occurrence: None)
  Receive Date: 20060621
  Receipt Date: 20060613
  Transmission Date: 20061013
  Serious: Yes (Hospitalization)
  Sender: FDA-Public Use
  Company Number: 200614108BWH

PATIENT
  Age: 49 Year
  Sex: Female
  Weight: 45.2 kg

DRUGS (1)
  1. SORAFENIB [Suspect]
     Indication: BILE DUCT CANCER
     Dosage: 400 MG, BID, ORAL
     Route: 048
     Dates: start: 20060112, end: 20060524

REACTIONS (10)
  - BLINDNESS TRANSIENT [None]
  - DRUG TOXICITY [None]
  - DYSKINESIA [None]
  - HEADACHE [None]
  - HYPERTENSION [None]
  - HYPERTENSIVE CRISIS [None]
  - LOSS OF CONSCIOUSNESS [None]
  - MENINGEAL DISORDER [None]
  - PHOTOPSIA [None]
  - REVERSIBLE POSTERIOR LEUKOENCEPHALOPATHY SYNDROME [None]
